FAERS Safety Report 4326527-9 (Version None)
Quarter: 2004Q1

REPORT INFORMATION
  Report Type: 
  Country: None (occurrence: None)
  Receive Date: 20040325
  Receipt Date: 20031009
  Transmission Date: 20041129
  Serious: Yes (Hospitalization)
  Sender: FDA-Public Use
  Company Number: US048951

PATIENT
  Age: 60 Year
  Sex: Male
  Weight: 88.5 kg

DRUGS (1)
  1. NEUPOGEN [Suspect]
     Indication: PERIPHERAL BLOOD STEM CELL APHERESIS
     Dosage: 900 MCG
     Dates: start: 20030921

REACTIONS (6)
  - HYPERHIDROSIS [None]
  - HYPOTENSION [None]
  - NAUSEA [None]
  - NECK PAIN [None]
  - PALLOR [None]
  - VOMITING [None]
